FAERS Safety Report 12862277 (Version 1)
Quarter: 2016Q4

REPORT INFORMATION
  Report Type: Spontaneous
  Country: US (occurrence: US)
  Receive Date: 20161018
  Receipt Date: 20161018
  Transmission Date: 20170207
  Serious: Yes (Other)
  Sender: FDA-Public Use
  Company Number: None

PATIENT
  Age: 62 Year
  Sex: Female

DRUGS (1)
  1. PACLITAXEL. [Suspect]
     Active Substance: PACLITAXEL
     Dosage: ?          OTHER FREQUENCY:WEEKLY;?
     Route: 041

REACTIONS (1)
  - Rash [None]

NARRATIVE: CASE EVENT DATE: 20161018
